FAERS Safety Report 6143939-1 (Version None)
Quarter: 2009Q2

REPORT INFORMATION
  Report Type: 
  Country: None (occurrence: None)
  Receive Date: 20090406
  Receipt Date: 20090324
  Transmission Date: 20091009
  Serious: Yes (Hospitalization)
  Sender: FDA-Public Use
  Company Number: PK-RANBAXY-2009RR-20535

PATIENT
  Age: 21 Year
  Sex: Male

DRUGS (1)
  1. SERTRALINE HCL [Suspect]
     Indication: DEPRESSION
     Dosage: 50 MG, QD

REACTIONS (1)
  - CUTANEOUS LUPUS ERYTHEMATOSUS [None]
